FAERS Safety Report 5691592-3 (Version None)
Quarter: 2008Q2

REPORT INFORMATION
  Report Type: 
  Country: None (occurrence: None)
  Receive Date: 20080402
  Receipt Date: 20050214
  Transmission Date: 20081010
  Serious: Yes (Death)
  Sender: FDA-Public Use
  Company Number: US-ROCHE-395609

PATIENT
  Age: 59 Year
  Sex: Male
  Weight: 64.5 kg

DRUGS (1)
  1. CAPECITABINE [Suspect]
     Route: 048

REACTIONS (1)
  - DISEASE PROGRESSION [None]
